FAERS Safety Report 7399665-4 (Version None)
Quarter: 2011Q2

REPORT INFORMATION
  Report Type: 
  Country: None (occurrence: None)
  Receive Date: 20110407
  Receipt Date: 20110330
  Transmission Date: 20111010
  Serious: Yes (Other)
  Sender: FDA-Public Use
  Company Number: JP-ROCHE-680151

PATIENT
  Sex: Male

DRUGS (18)
  1. TOCILIZUMAB [Suspect]
     Route: 041
     Dates: start: 20090423, end: 20090423
  2. PYDOXAL [Concomitant]
     Route: 048
  3. TOCILIZUMAB [Suspect]
     Route: 041
     Dates: start: 20090616, end: 20090616
  4. OMEPRAL [Concomitant]
     Dosage: FORM: ENTERIC COATING DRUG
     Route: 048
  5. RHEUMATREX [Concomitant]
     Route: 048
     Dates: start: 20090616, end: 20090823
  6. PREDNISOLONE [Concomitant]
     Route: 048
  7. TALION [Concomitant]
     Route: 048
     Dates: start: 20090306
  8. AZULFIDINE [Concomitant]
     Dosage: DRUG: SALAZOSULFAPYRIDINE, FORM: ENTERIC
     Route: 048
     Dates: end: 20090519
  9. RHEUMATREX [Concomitant]
     Route: 048
     Dates: end: 20090615
  10. TOCILIZUMAB [Suspect]
     Indication: RHEUMATOID ARTHRITIS
     Route: 041
     Dates: start: 20090306, end: 20090306
  11. AZULFIDINE [Concomitant]
     Route: 048
     Dates: start: 20090520, end: 20090712
  12. LORCAM [Concomitant]
     Route: 048
  13. TOCILIZUMAB [Suspect]
     Route: 041
     Dates: start: 20090330, end: 20090330
  14. TOCILIZUMAB [Suspect]
     Route: 041
     Dates: start: 20090520, end: 20090520
  15. CALONAL [Concomitant]
     Dosage: SINGLE USE (DOSAGE DURING DAY: 400 MG)
     Route: 048
     Dates: start: 20090307, end: 20090309
  16. TOCILIZUMAB [Suspect]
     Dosage: THERAPY: DISCONTINUED.
     Route: 041
     Dates: start: 20090713, end: 20090713
  17. ISONIAZID [Concomitant]
     Dosage: FORM: PERORAL AGENT
     Route: 048
     Dates: end: 20090519
  18. FOLIC ACID [Concomitant]
     Dosage: FORM: PERORAL AGENT
     Route: 048

REACTIONS (5)
  - PNEUMONIA [None]
  - ENTERITIS INFECTIOUS [None]
  - URINARY TRACT INFECTION [None]
  - ENTEROCOLITIS [None]
  - IMMUNE SYSTEM DISORDER [None]
